FAERS Safety Report 18437765 (Version 12)
Quarter: 2025Q1

REPORT INFORMATION
  Report Type: Report from Study
  Country: US (occurrence: US)
  Receive Date: 20201028
  Receipt Date: 20250311
  Transmission Date: 20250409
  Serious: Yes (Hospitalization, Other)
  Sender: TAKEDA
  Company Number: US-TAKEDA-US202033756

PATIENT
  Age: 46 Year
  Sex: Female

DRUGS (5)
  1. PARATHYROID HORMONE [Suspect]
     Active Substance: PARATHYROID HORMONE
     Indication: Hypoparathyroidism
     Dosage: 75 MICROGRAM, QD
     Dates: start: 20170331
  2. PARATHYROID HORMONE [Suspect]
     Active Substance: PARATHYROID HORMONE
     Dosage: 75 MICROGRAM, QD
  3. PARATHYROID HORMONE [Suspect]
     Active Substance: PARATHYROID HORMONE
  4. PARATHYROID HORMONE [Suspect]
     Active Substance: PARATHYROID HORMONE
     Dosage: 75 MICROGRAM, QD
     Dates: start: 20191005, end: 20250304
  5. COVID-19 VACCINE NOS [Suspect]
     Active Substance: COVID-19 VACCINE
     Indication: Product used for unknown indication

REACTIONS (24)
  - Blood calcium decreased [Recovered/Resolved]
  - Appendicitis [Unknown]
  - Hypoparathyroidism [Recovering/Resolving]
  - Migraine [Recovered/Resolved]
  - Trismus [Recovered/Resolved]
  - Asthma [Unknown]
  - Illness [Recovering/Resolving]
  - Furuncle [Recovering/Resolving]
  - Gastrointestinal disorder [Not Recovered/Not Resolved]
  - Temporomandibular pain and dysfunction syndrome [Not Recovered/Not Resolved]
  - Hypersensitivity [Not Recovered/Not Resolved]
  - Blood calcium increased [Recovered/Resolved]
  - Hypoglycaemia [Not Recovered/Not Resolved]
  - Sedation [Recovering/Resolving]
  - Headache [Recovering/Resolving]
  - Pollakiuria [Not Recovered/Not Resolved]
  - Chills [Not Recovered/Not Resolved]
  - Post procedural complication [Recovering/Resolving]
  - Fatigue [Not Recovered/Not Resolved]
  - Device leakage [Recovering/Resolving]
  - Incorrect dose administered [Unknown]
  - Product preparation issue [Recovering/Resolving]
  - Expired device used [Recovering/Resolving]
  - Device defective [Recovering/Resolving]

NARRATIVE: CASE EVENT DATE: 20200929
